FAERS Safety Report 7486338-2 (Version None)
Quarter: 2011Q2

REPORT INFORMATION
  Report Type: 
  Country: None (occurrence: None)
  Receive Date: 20110517
  Receipt Date: 20110506
  Transmission Date: 20111010
  Serious: Yes (Other)
  Sender: FDA-Public Use
  Company Number: PHHY2011MT38132

PATIENT

DRUGS (2)
  1. VINORELBINE [Suspect]
     Dosage: UNK UKN, UNK
  2. NORMAL SALINE [Concomitant]
     Dosage: 50ML 0.9%

REACTIONS (2)
  - TOXICITY TO VARIOUS AGENTS [None]
  - VEIN DISORDER [None]
